FAERS Safety Report 18602126 (Version 5)
Quarter: 2023Q1

REPORT INFORMATION
  Report Type: Report from Study
  Country: AT (occurrence: AT)
  Receive Date: 20201210
  Receipt Date: 20230117
  Transmission Date: 20230418
  Serious: Yes (Other)
  Sender: FDA-Public Use
  Company Number: AT-ROCHE-2415586

PATIENT
  Age: 67 Year
  Sex: Female
  Weight: 89 kg

DRUGS (64)
  1. ANASTROZOLE [Suspect]
     Active Substance: ANASTROZOLE
     Indication: Breast cancer
     Dosage: 1 MILLIGRAM, QD(RECENT DOSE: 14/MAY/2018)
     Route: 048
     Dates: start: 20170324, end: 20180514
  2. ANASTROZOLE [Suspect]
     Active Substance: ANASTROZOLE
     Indication: Breast cancer metastatic
  3. ANASTROZOLE [Suspect]
     Active Substance: ANASTROZOLE
     Indication: Breast cancer
     Dosage: 1 MILLIGRAM, QD(RECENT DOSE: 14/MAY/2018)
     Route: 048
     Dates: start: 20170324, end: 20180514
  4. FULVESTRANT [Suspect]
     Active Substance: FULVESTRANT
     Indication: Breast cancer
     Dosage: 500 MILLIGRAM, Q2W(PRIOR TO EVENT: 23/DEC/2018)
     Route: 030
     Dates: start: 20181128
  5. FULVESTRANT [Suspect]
     Active Substance: FULVESTRANT
     Indication: Breast cancer metastatic
     Dosage: 500 MILLIGRAM, 4 WEEKS
     Route: 042
     Dates: start: 20181226
  6. TRASTUZUMAB [Suspect]
     Active Substance: TRASTUZUMAB
     Indication: Breast cancer
     Dosage: 712 MILLIGRAM, 3XW(DOSE PRIOR EVENT: 07/NOV/2018)
     Route: 042
     Dates: start: 20170324
  7. TRASTUZUMAB [Suspect]
     Active Substance: TRASTUZUMAB
     Indication: Breast cancer metastatic
     Dosage: 534 MILLIGRAM, 3XW
     Route: 042
     Dates: start: 20170414, end: 20170619
  8. TRASTUZUMAB [Suspect]
     Active Substance: TRASTUZUMAB
     Dosage: 534 MILLIGRAM, 3XW
     Route: 042
     Dates: start: 20170714, end: 20170804
  9. TRASTUZUMAB [Suspect]
     Active Substance: TRASTUZUMAB
     Dosage: 474 MILLIGRAM, 3XW
     Route: 042
     Dates: start: 20171213, end: 20180514
  10. TRASTUZUMAB [Suspect]
     Active Substance: TRASTUZUMAB
     Dosage: 438 MILLIGRAM, 3XW
     Route: 042
     Dates: start: 20180926, end: 20180926
  11. TRASTUZUMAB [Suspect]
     Active Substance: TRASTUZUMAB
     Dosage: 408 MILLIGRAM, 3XW (ON 24/APR/2020, RECENT DOSE)
     Route: 042
     Dates: start: 20181219, end: 20200424
  12. TRASTUZUMAB [Suspect]
     Active Substance: TRASTUZUMAB
     Dosage: 438 MILLIGRAM, 3XW (DOSE PRIOR EVENT: 19/DEC/2018)
     Route: 042
     Dates: start: 20181017, end: 20181017
  13. TRASTUZUMAB [Suspect]
     Active Substance: TRASTUZUMAB
     Dosage: 420 MILLIGRAM, 3XW
     Route: 042
     Dates: start: 20181107, end: 20181107
  14. TRASTUZUMAB [Suspect]
     Active Substance: TRASTUZUMAB
     Dosage: 420 MILLIGRAM, 3XW
     Route: 042
     Dates: start: 20181128, end: 20181128
  15. TRASTUZUMAB [Suspect]
     Active Substance: TRASTUZUMAB
     Dosage: 462 MILLIGRAM, 3XW
     Route: 042
     Dates: start: 20180608, end: 20180608
  16. TRASTUZUMAB [Suspect]
     Active Substance: TRASTUZUMAB
     Dosage: 480 MILLIGRAM, 3XW
     Route: 042
     Dates: start: 20170828, end: 20171030
  17. TRASTUZUMAB [Suspect]
     Active Substance: TRASTUZUMAB
     Dosage: 450 MILLIGRAM, 3XW
     Route: 042
     Dates: start: 20180723, end: 20180904
  18. TRASTUZUMAB [Suspect]
     Active Substance: TRASTUZUMAB
     Dosage: 450 MILLIGRAM, 3XW
     Route: 042
     Dates: start: 20200515, end: 20210402
  19. DOCETAXEL [Suspect]
     Active Substance: DOCETAXEL
     Indication: Breast cancer metastatic
     Dosage: 137 MILLIGRAM, 3XW (RECENT DOSE PRIOR EVENT)
     Route: 042
     Dates: start: 20180608, end: 20180608
  20. DOCETAXEL [Suspect]
     Active Substance: DOCETAXEL
     Dosage: 134.32 MILLIGRAM, 3XW
     Route: 042
     Dates: start: 20180723, end: 20180904
  21. DOCETAXEL [Suspect]
     Active Substance: DOCETAXEL
     Dosage: 132.78 MILLIGRAM, 3XW
     Route: 042
     Dates: start: 20180926, end: 20180926
  22. DOCETAXEL [Suspect]
     Active Substance: DOCETAXEL
     Dosage: 106.22 MILLIGRAM, 3XW
     Route: 042
     Dates: start: 20181017, end: 20181017
  23. PERTUZUMAB [Suspect]
     Active Substance: PERTUZUMAB
     Indication: Breast cancer
     Dosage: 840 MILLIGRAM, 3XW(DOSE PRIOR EVENT: 23/JUL/2018)
     Route: 042
     Dates: start: 20170324, end: 20170324
  24. PERTUZUMAB [Suspect]
     Active Substance: PERTUZUMAB
     Indication: Breast cancer metastatic
     Dosage: 420 MILLIGRAM, 3XW
     Route: 042
     Dates: start: 20170414, end: 20170619
  25. PERTUZUMAB [Suspect]
     Active Substance: PERTUZUMAB
     Dosage: 420 MILLIGRAM, 3XW
     Route: 042
     Dates: start: 20170714, end: 20180608
  26. PERTUZUMAB [Suspect]
     Active Substance: PERTUZUMAB
     Dosage: 420 MILLIGRAM, 3XW
     Route: 042
     Dates: start: 20171213, end: 20180608
  27. PERTUZUMAB [Suspect]
     Active Substance: PERTUZUMAB
     Dosage: 420 MILLIGRAM, 3XW
     Route: 042
     Dates: start: 20171213, end: 20180608
  28. PERTUZUMAB [Suspect]
     Active Substance: PERTUZUMAB
     Dosage: 420 MILLIGRAM, 3XW
     Route: 042
     Dates: start: 20180723, end: 20210402
  29. FASLODEX [Suspect]
     Active Substance: FULVESTRANT
     Indication: Breast cancer
     Dosage: 500 MILLIGRAM, Q2W(DOSE PRIOR EVENT: 23/DEC/2018)
     Route: 030
     Dates: start: 20181128
  30. DENOSUMAB [Suspect]
     Active Substance: DENOSUMAB
     Indication: Breast cancer metastatic
     Dosage: 120 MILLIGRAM, MONTHLY
     Route: 058
     Dates: start: 20170505
  31. DENOSUMAB [Suspect]
     Active Substance: DENOSUMAB
     Dosage: 120 MILLIGRAM, MONTHLY
     Route: 058
     Dates: start: 20200310
  32. DENOSUMAB [Suspect]
     Active Substance: DENOSUMAB
     Dosage: 120 MILLIGRAM, MONTHLY
     Route: 058
     Dates: start: 20210302
  33. TAXOTERE [Suspect]
     Active Substance: DOCETAXEL
     Indication: Breast cancer
     Dosage: 137 MILLIGRAM, 3XW(DOSE PRIOR EVENT: 17/OCT/2018)
     Route: 042
     Dates: start: 20180608
  34. FOSTER [Concomitant]
     Active Substance: BECLOMETHASONE\FORMOTEROL
     Indication: Dyspnoea
     Dosage: (ONGOING = CHECKED)
     Route: 065
     Dates: start: 20171120
  35. TORSEMIDE [Concomitant]
     Active Substance: TORSEMIDE
     Indication: Hypertension
     Dosage: (ONGOING = CHECKED)
     Route: 065
     Dates: start: 20180214, end: 20190615
  36. RANITIDINE HYDROCHLORIDE [Concomitant]
     Active Substance: RANITIDINE HYDROCHLORIDE
     Dosage: (ONGOING = CHECKED)
     Route: 065
     Dates: start: 20170414, end: 20191119
  37. DEXABENE [Concomitant]
     Dosage: (ONGOING = CHECKED)
     Route: 065
     Dates: start: 20181107
  38. KYTRIL [Concomitant]
     Active Substance: GRANISETRON HYDROCHLORIDE
     Dosage: (ONGOING = CHECKED)
     Route: 065
     Dates: start: 20180608
  39. ACETAMINOPHEN [Concomitant]
     Active Substance: ACETAMINOPHEN
     Dosage: (ONGOING = CHECKED)
     Route: 065
     Dates: start: 20180715
  40. DEXAMETHASONE [Concomitant]
     Active Substance: DEXAMETHASONE
     Dosage: (ONGOING = CHECKED)
     Route: 065
     Dates: start: 20181017
  41. PANTOPRAZOLE [Concomitant]
     Active Substance: PANTOPRAZOLE
     Dosage: (ONGOING = CHECKED)
     Route: 065
  42. BISOPROLOL FUMARATE [Concomitant]
     Active Substance: BISOPROLOL FUMARATE
     Indication: Hypertension
     Dosage: (ONGOING = CHECKED)
     Route: 065
     Dates: start: 20180814
  43. POLYETHYLENE GLYCOL 3350\POTASSIUM CHLORIDE\SODIUM BICARBONATE\SODIUM [Concomitant]
     Active Substance: POLYETHYLENE GLYCOL 3350\POTASSIUM CHLORIDE\SODIUM BICARBONATE\SODIUM CHLORIDE
     Dosage: (ONGOING = CHECKED)
     Route: 065
     Dates: start: 20180715
  44. DIMETHINDENE [Concomitant]
     Active Substance: DIMETHINDENE
     Dosage: (ONGOING = CHECKED)
     Route: 065
     Dates: start: 20170414
  45. CALCIUM CARBONATE\CHOLECALCIFEROL [Concomitant]
     Active Substance: CALCIUM CARBONATE\CHOLECALCIFEROL
     Dosage: (ONGOING = CHECKED)
     Route: 065
     Dates: start: 20170505, end: 20190615
  46. HYDROCHLOROTHIAZIDE\RAMIPRIL [Concomitant]
     Active Substance: HYDROCHLOROTHIAZIDE\RAMIPRIL
     Dosage: UNK (ONGOING = CHECKED)
     Route: 065
     Dates: end: 20200424
  47. NOVALGIN (METAMIZOLE SODIUM) [Concomitant]
     Active Substance: METAMIZOLE SODIUM
     Indication: Pain
     Dosage: (ONGOING = CHECKED)
     Route: 065
     Dates: start: 20180715
  48. XGEVA [Concomitant]
     Active Substance: DENOSUMAB
     Dosage: UNK (ONGOING = CHECKED)
     Route: 065
     Dates: start: 20181017, end: 20201127
  49. ASPIRIN [Concomitant]
     Active Substance: ASPIRIN
     Indication: Hypertension
     Dosage: (ONGOING = CHECKED)
     Route: 065
     Dates: start: 20171120, end: 20190615
  50. DAPAGLIFLOZIN [Concomitant]
     Active Substance: DAPAGLIFLOZIN
     Dosage: UNK
     Route: 065
  51. CLINDAMYCIN [Concomitant]
     Active Substance: CLINDAMYCIN
     Dosage: UNK
     Route: 065
  52. DEXIBUPROFEN [Concomitant]
     Active Substance: DEXIBUPROFEN
     Dosage: UNK
     Route: 065
  53. MEROPENEM [Concomitant]
     Active Substance: MEROPENEM
     Dosage: UNK
     Route: 065
  54. Lannapril plus [Concomitant]
     Dosage: UNK
     Route: 065
  55. LOVENOX [Concomitant]
     Active Substance: ENOXAPARIN SODIUM
     Dosage: UNK
     Route: 065
  56. RAMIPRIL [Concomitant]
     Active Substance: RAMIPRIL
     Dosage: UNK
     Route: 065
  57. METHYLPREDNISOLONE [Concomitant]
     Active Substance: METHYLPREDNISOLONE
     Dosage: UNK
     Route: 065
  58. CORTISONE ACETATE [Concomitant]
     Active Substance: CORTISONE ACETATE
     Dosage: UNK
     Route: 065
  59. FERINJECT [Concomitant]
     Active Substance: FERRIC CARBOXYMALTOSE
     Dosage: UNK
     Route: 065
  60. INSPRA [Concomitant]
     Active Substance: EPLERENONE
     Dosage: UNK
     Route: 065
  61. AVELOX [Concomitant]
     Active Substance: MOXIFLOXACIN HYDROCHLORIDE
     Dosage: UNK
     Route: 065
  62. VIBRAMYCIN [Concomitant]
     Active Substance: DOXYCYCLINE
     Dosage: UNK
     Route: 065
  63. AMLODIPINE BESYLATE [Concomitant]
     Active Substance: AMLODIPINE BESYLATE
     Dosage: UNK
     Route: 065
  64. RAMIPRIL [Concomitant]
     Active Substance: RAMIPRIL
     Dosage: UNK
     Route: 065

REACTIONS (1)
  - Pulmonary oedema [Recovered/Resolved]

NARRATIVE: CASE EVENT DATE: 20190704
